FAERS Safety Report 23527544 (Version 2)
Quarter: 2024Q1

REPORT INFORMATION
  Report Type: Report from Study
  Country: US (occurrence: US)
  Receive Date: 20240215
  Receipt Date: 20240226
  Transmission Date: 20240410
  Serious: Yes (Congenital Anomaly)
  Sender: FDA-Public Use
  Company Number: US-TAKEDA-2024TUS012004

PATIENT

DRUGS (31)
  1. PRUCALOPRIDE [Suspect]
     Active Substance: PRUCALOPRIDE
     Indication: Constipation
     Dosage: 2 MILLIGRAM, QD
     Route: 064
     Dates: start: 20220215, end: 20230909
  2. ADVAIR HFA [Concomitant]
     Active Substance: FLUTICASONE PROPIONATE\SALMETEROL XINAFOATE
     Indication: Asthma
     Dosage: UNK UNK, QD
     Route: 064
     Dates: start: 20230813
  3. AIMOVIG [Concomitant]
     Active Substance: ERENUMAB-AOOE
     Indication: Migraine
     Dosage: UNK UNK, MONTHLY
     Route: 064
     Dates: start: 20230813, end: 20230909
  4. ALBUTEROL [Concomitant]
     Active Substance: ALBUTEROL
     Indication: Asthma
     Dosage: UNK
     Route: 064
     Dates: start: 20230813
  5. AZATHIOPRINE [Concomitant]
     Active Substance: AZATHIOPRINE
     Indication: Dermatitis atopic
     Dosage: UNK
     Route: 064
     Dates: start: 20230813, end: 20230909
  6. BETAMETHASONE [Concomitant]
     Active Substance: BETAMETHASONE\BETAMETHASONE DIPROPIONATE
     Indication: Dermatitis atopic
     Dosage: UNK UNK, BID
     Route: 064
     Dates: start: 20230813, end: 20230909
  7. BOTOX [Concomitant]
     Active Substance: ONABOTULINUMTOXINA
     Indication: Migraine
     Dosage: UNK
     Route: 064
     Dates: start: 20230813
  8. CORTISONE [Concomitant]
     Active Substance: CORTISONE
     Indication: Dermatitis atopic
     Dosage: UNK UNK, QD
     Route: 064
     Dates: start: 20230813
  9. DEXAMETHASONE [Concomitant]
     Active Substance: DEXAMETHASONE
     Indication: Dermatitis atopic
     Dosage: UNK
     Route: 064
     Dates: start: 20230813
  10. DUPIXENT [Concomitant]
     Active Substance: DUPILUMAB
     Indication: Asthma
     Dosage: UNK UNK, 2/MONTH
     Route: 064
     Dates: start: 20200701, end: 20230920
  11. DUPIXENT [Concomitant]
     Active Substance: DUPILUMAB
     Indication: Dermatitis atopic
  12. HYDROXYCHLOROQUINE SULFATE [Concomitant]
     Active Substance: HYDROXYCHLOROQUINE SULFATE
     Indication: Rheumatoid arthritis
     Dosage: 200 MILLIGRAM, QD
     Route: 064
     Dates: start: 20230813
  13. HYDROXYCHLOROQUINE SULFATE [Concomitant]
     Active Substance: HYDROXYCHLOROQUINE SULFATE
     Indication: Systemic lupus erythematosus
  14. METHYLPREDNISOLONE [Concomitant]
     Active Substance: METHYLPREDNISOLONE
     Indication: Dermatitis atopic
     Dosage: UNK
     Route: 064
     Dates: start: 20230813, end: 20230909
  15. MIRENA [Concomitant]
     Active Substance: LEVONORGESTREL
     Dosage: UNK
     Route: 064
     Dates: start: 20180715, end: 20230812
  16. PFIZER-BIONTECH COVID-19 VACCINE [Concomitant]
     Active Substance: TOZINAMERAN
     Dosage: UNK
     Route: 064
     Dates: start: 20210101, end: 20211231
  17. PFIZER-BIONTECH COVID-19 VACCINE [Concomitant]
     Active Substance: TOZINAMERAN
     Dosage: UNK
     Route: 064
     Dates: start: 20230201, end: 20230228
  18. PFIZER-BIONTECH COVID-19 VACCINE [Concomitant]
     Active Substance: TOZINAMERAN
     Dosage: UNK
     Route: 064
     Dates: start: 20231011, end: 20231011
  19. PFIZER-BIONTECH COVID-19 VACCINE [Concomitant]
     Active Substance: TOZINAMERAN
     Dosage: UNK
     Route: 064
     Dates: start: 20220101, end: 20221231
  20. PREDNISOLONE [Concomitant]
     Active Substance: PREDNISOLONE
     Indication: Dermatitis atopic
     Dosage: 5 MILLIGRAM, QD
     Route: 064
     Dates: start: 20230813, end: 20230909
  21. PREDNISONE [Concomitant]
     Active Substance: PREDNISONE
     Indication: Dermatitis atopic
     Dosage: 50 MILLIGRAM
     Route: 064
     Dates: start: 20230813
  22. PREDNISONE [Concomitant]
     Active Substance: PREDNISONE
     Indication: Asthma
  23. PREDNISONE [Concomitant]
     Active Substance: PREDNISONE
     Indication: Rheumatoid arthritis
  24. PREDNISONE [Concomitant]
     Active Substance: PREDNISONE
     Indication: Systemic lupus erythematosus
  25. PRISTIQ EXTENDED-RELEASE [Concomitant]
     Active Substance: DESVENLAFAXINE SUCCINATE
     Indication: Depression
     Dosage: 100 MILLIGRAM, BID
     Route: 064
     Dates: start: 20230813
  26. RHOGAM [Concomitant]
     Active Substance: HUMAN RHO(D) IMMUNE GLOBULIN
     Dosage: UNK UNK, QD
     Route: 064
     Dates: start: 20231214, end: 20231214
  27. RHOGAM [Concomitant]
     Active Substance: HUMAN RHO(D) IMMUNE GLOBULIN
     Dosage: UNK UNK, QD
     Route: 064
     Dates: start: 20231117, end: 20231117
  28. SPRAVATO [Concomitant]
     Active Substance: ESKETAMINE
     Indication: Depression
     Dosage: 28 MILLIGRAM, 2/WEEK
     Route: 064
     Dates: start: 20230813, end: 20230909
  29. SYMBICORT [Concomitant]
     Active Substance: BUDESONIDE\FORMOTEROL FUMARATE DIHYDRATE
     Indication: Asthma
     Dosage: UNK
     Route: 064
     Dates: start: 20230813
  30. VITAMIN C [Concomitant]
     Active Substance: ASCORBIC ACID
     Indication: Gastric bypass
     Dosage: UNK UNK, QD
     Route: 064
     Dates: start: 20230813
  31. VITAMIN D [Concomitant]
     Active Substance: VITAMIN D NOS
     Indication: Gastric bypass
     Dosage: 50000 INTERNATIONAL UNIT, QD
     Route: 064
     Dates: start: 20230813

REACTIONS (1)
  - Kidney duplex [Unknown]

NARRATIVE: CASE EVENT DATE: 20240117
